FAERS Safety Report 20961833 (Version 2)
Quarter: 2022Q4

REPORT INFORMATION
  Report Type: Spontaneous
  Country: US (occurrence: US)
  Receive Date: 20220615
  Receipt Date: 20221027
  Transmission Date: 20230112
  Serious: No
  Sender: FDA-Public Use
  Company Number: US-drreddys-SPO/USA/22/0150906

PATIENT
  Sex: Female

DRUGS (1)
  1. DOANS EXTRA STRENGTH [Suspect]
     Active Substance: MAGNESIUM SALICYLATE
     Indication: Analgesic therapy
     Dates: start: 20220527, end: 20220529

REACTIONS (6)
  - Urinary tract infection [Recovering/Resolving]
  - Vulvovaginal inflammation [Recovering/Resolving]
  - Vulvovaginal mycotic infection [Recovering/Resolving]
  - Vulvovaginal burning sensation [Recovering/Resolving]
  - Drug ineffective [Unknown]
  - Product quality issue [Unknown]
